FAERS Safety Report 9311771 (Version 1)
Quarter: 2013Q2

REPORT INFORMATION
  Report Type: Spontaneous
  Country: JP (occurrence: JP)
  Receive Date: 20130524
  Receipt Date: 20130524
  Transmission Date: 20140414
  Serious: Yes (Death, Other)
  Sender: FDA-Public Use
  Company Number: JP-BRACCO-007070

PATIENT
  Sex: 0

DRUGS (2)
  1. SODIUM CHLORIDE [Concomitant]
  2. IOPAMIDOL [Suspect]
     Indication: CATHETERISATION CARDIAC
     Route: 013

REACTIONS (2)
  - Renal impairment [Fatal]
  - Nephropathy toxic [Unknown]
